FAERS Safety Report 6245292-1 (Version None)
Quarter: 2009Q2

REPORT INFORMATION
  Report Type: 
  Country: None (occurrence: None)
  Receive Date: 20090623
  Receipt Date: 20090623
  Transmission Date: 20091009
  Serious: Yes (Other)
  Sender: FDA-Public Use
  Company Number: None

PATIENT
  Age: 72 Year
  Sex: Female
  Weight: 70.3075 kg

DRUGS (1)
  1. FOSAMAX [Suspect]
     Indication: OSTEOPOROSIS
     Dosage: 35MG Q WEEK PO
     Route: 048
     Dates: start: 20080202, end: 20080209

REACTIONS (3)
  - ARTHRALGIA [None]
  - MYALGIA [None]
  - QUALITY OF LIFE DECREASED [None]
